FAERS Safety Report 7818181-6 (Version None)
Quarter: 2011Q4

REPORT INFORMATION
  Report Type: 
  Country: None (occurrence: None)
  Receive Date: 20111017
  Receipt Date: 20111003
  Transmission Date: 20120403
  Serious: No
  Sender: FDA-Public Use
  Company Number: US-ELI_LILLY_AND_COMPANY-US201108001324

PATIENT
  Sex: Female
  Weight: 99.773 kg

DRUGS (3)
  1. NOVOLOG [Concomitant]
  2. HUMATROPE [Suspect]
     Indication: POSTPARTUM HYPOPITUITARISM
     Dosage: UNK, QD
     Dates: start: 20091001
  3. HUMALOG [Suspect]

REACTIONS (2)
  - URTICARIA [None]
  - NO ADVERSE EVENT [None]
